FAERS Safety Report 15856718 (Version 2)
Quarter: 2019Q1

REPORT INFORMATION
  Report Type: Spontaneous
  Country: CN (occurrence: CN)
  Receive Date: 20190123
  Receipt Date: 20190207
  Transmission Date: 20190417
  Serious: Yes (Death, Life-Threatening, Other)
  Sender: FDA-Public Use
  Company Number: CN-CLINIGEN GROUP PLC/ CLINIGEN HEALTHCARE LTD-CN-CLGN-19-00010

PATIENT
  Age: 27 Year
  Sex: Female
  Weight: 60 kg

DRUGS (9)
  1. KENAI [FOSCARNET SODIUM] [Suspect]
     Active Substance: FOSCARNET SODIUM
     Indication: CHRONIC DISEASE
  2. KENAI [FOSCARNET SODIUM] [Suspect]
     Active Substance: FOSCARNET SODIUM
     Indication: EPSTEIN-BARR VIRUS INFECTION
     Route: 042
     Dates: start: 20180705, end: 20180722
  3. THYMOSIN ALPHA 1 [Concomitant]
     Indication: IMMUNOMODULATORY THERAPY
     Dates: start: 20180622, end: 20180729
  4. THYMOSIN ALPHA 1 [Concomitant]
     Indication: ANTIVIRAL TREATMENT
  5. METHYLPREDNISOLONE. [Concomitant]
     Active Substance: METHYLPREDNISOLONE
     Indication: IMMUNOMODULATORY THERAPY
  6. GANCICLOVIR. [Concomitant]
     Active Substance: GANCICLOVIR
     Indication: PRODUCT USED FOR UNKNOWN INDICATION
     Route: 042
     Dates: start: 20180614, end: 20180713
  7. ACYCLOVIR. [Suspect]
     Active Substance: ACYCLOVIR
     Indication: CHRONIC DISEASE
  8. METHYLPREDNISOLONE. [Concomitant]
     Active Substance: METHYLPREDNISOLONE
     Indication: ANTIVIRAL TREATMENT
  9. ACYCLOVIR. [Suspect]
     Active Substance: ACYCLOVIR
     Indication: EPSTEIN-BARR VIRUS INFECTION
     Route: 042
     Dates: start: 20180714, end: 20180722

REACTIONS (3)
  - Natural killer-cell lymphoblastic lymphoma [Fatal]
  - Off label use [Unknown]
  - Haemophagocytic lymphohistiocytosis [Fatal]
